FAERS Safety Report 23758404 (Version 3)
Quarter: 2024Q2

REPORT INFORMATION
  Report Type: Report from Study
  Country: US (occurrence: US)
  Receive Date: 20240418
  Receipt Date: 20240506
  Transmission Date: 20240716
  Serious: Yes (Hospitalization)
  Sender: FDA-Public Use
  Company Number: US-ALKERMES INC.-ALK-2024-001025

PATIENT
  Age: 47 Year
  Sex: Male

DRUGS (8)
  1. BUPRENORPHINE [Suspect]
     Active Substance: BUPRENORPHINE
     Indication: Drug use disorder
     Dosage: 380 MILLIGRAM, WEEKS 0,3,6
     Route: 030
     Dates: start: 20240314
  2. INVESTIGATIONAL PRODUCT [Suspect]
     Active Substance: INVESTIGATIONAL PRODUCT
     Indication: Drug use disorder
     Dosage: 380 MILLIGRAM, WEEKS 0,3,6
     Route: 030
     Dates: start: 20240314
  3. VIVITROL [Suspect]
     Active Substance: NALTREXONE
     Indication: Drug use disorder
     Dosage: 380 MILLIGRAM, WEEKS 0,3,6
     Route: 030
     Dates: start: 20240314
  4. VIVITROL [Suspect]
     Active Substance: NALTREXONE
     Indication: Drug use disorder
     Dosage: 380 MILLIGRAM, WEEKS 0,3,6
     Route: 030
     Dates: start: 20240314
  5. BUPRENORPHINE [Suspect]
     Active Substance: BUPRENORPHINE
     Dosage: 300 MILLIGRAM, WEEK 0,4
     Route: 058
     Dates: start: 20240320
  6. INVESTIGATIONAL PRODUCT [Suspect]
     Active Substance: INVESTIGATIONAL PRODUCT
     Dosage: 300 MILLIGRAM, WEEK 0,4
     Route: 058
     Dates: start: 20240320
  7. VIVITROL [Suspect]
     Active Substance: NALTREXONE
     Dosage: 300 MILLIGRAM, WEEK 0,4
     Route: 058
     Dates: start: 20240320
  8. VIVITROL [Suspect]
     Active Substance: NALTREXONE
     Dosage: 300 MILLIGRAM, WEEK 0,4
     Route: 058
     Dates: start: 20240320

REACTIONS (1)
  - Confusional state [Not Recovered/Not Resolved]

NARRATIVE: CASE EVENT DATE: 20240410
